FAERS Safety Report 7643851-2 (Version None)
Quarter: 2011Q3

REPORT INFORMATION
  Report Type: 
  Country: None (occurrence: None)
  Receive Date: 20110729
  Receipt Date: 20100719
  Transmission Date: 20111222
  Serious: No
  Sender: FDA-Public Use
  Company Number: US-GLAXOSMITHKLINE-A0873264A

PATIENT
  Age: 61 Year
  Sex: Female

DRUGS (1)
  1. IMITREX [Suspect]
     Indication: HEADACHE
     Dosage: 100MG AS DIRECTED
     Route: 048
     Dates: start: 20100111

REACTIONS (1)
  - HEADACHE [None]
